FAERS Safety Report 15403022 (Version 1)
Quarter: 2018Q3

REPORT INFORMATION
  Report Type: Spontaneous
  Country: AU (occurrence: AU)
  Receive Date: 20180918
  Receipt Date: 20180918
  Transmission Date: 20181010
  Serious: Yes (Other)
  Sender: FDA-Public Use
  Company Number: None

PATIENT
  Age: 29 Year
  Sex: Male
  Weight: 75 kg

DRUGS (1)
  1. PAXIL [Suspect]
     Active Substance: PAROXETINE HYDROCHLORIDE
     Indication: SOCIAL ANXIETY DISORDER
     Route: 048
     Dates: start: 20090101, end: 20090930

REACTIONS (7)
  - Loss of libido [None]
  - Orgasmic sensation decreased [None]
  - Blunted affect [None]
  - Erectile dysfunction [None]
  - Emotional disorder [None]
  - Hypoaesthesia [None]
  - Anhedonia [None]

NARRATIVE: CASE EVENT DATE: 20090901
